FAERS Safety Report 6210069-X (Version None)
Quarter: 2009Q2

REPORT INFORMATION
  Report Type: 
  Country: None (occurrence: None)
  Receive Date: 20090601
  Receipt Date: 20090527
  Transmission Date: 20091009
  Serious: No
  Sender: FDA-Public Use
  Company Number: US-B.I. PHARMACEUTICALS,INC./RIDGEFIELD-2009-BP-06594BP

PATIENT

DRUGS (12)
  1. MIRAPEX [Suspect]
  2. LYRICA [Concomitant]
  3. DARVOCET [Concomitant]
  4. METFORMIN [Concomitant]
  5. AMILORIDE HYDROCHLORIDE [Concomitant]
  6. PRIMIDONE [Concomitant]
  7. DILTIAZEM [Concomitant]
  8. METOLAZONE [Concomitant]
  9. COLCHICINE [Concomitant]
  10. DIOVAN [Concomitant]
  11. FUROSEMIDE [Concomitant]
  12. CYCLOBENZAPRINE [Concomitant]

REACTIONS (2)
  - BARBITURATES POSITIVE [None]
  - DRUG SCREEN POSITIVE [None]
